FAERS Safety Report 4427380-5 (Version None)
Quarter: 2004Q3

REPORT INFORMATION
  Report Type: 
  Country: None (occurrence: None)
  Receive Date: 20040812
  Receipt Date: 20040730
  Transmission Date: 20050211
  Serious: Yes (Hospitalization, Other)
  Sender: FDA-Public Use
  Company Number: 2004047196

PATIENT
  Age: 72 Year
  Sex: Male

DRUGS (7)
  1. LIPITOR [Suspect]
     Indication: HYPERLIPIDAEMIA
     Dosage: 10 MG (10 MG, 1 IN 1 D), ORAL
     Route: 048
     Dates: start: 20040518, end: 20040706
  2. CARVEDILOL [Concomitant]
  3. ASPIRIN [Concomitant]
  4. NICORANDIL (NICORANDIL) [Concomitant]
  5. MECOBALAMIN (MECOBALAMIN) [Concomitant]
  6. FAMOTIDINE [Concomitant]
  7. ISOSORBIDE DINITRATE [Concomitant]

REACTIONS (5)
  - C-REACTIVE PROTEIN INCREASED [None]
  - FAECAL OCCULT BLOOD POSITIVE [None]
  - LIVER DISORDER [None]
  - MYALGIA [None]
  - MYOGLOBINURIA [None]
